FAERS Safety Report 23180375 (Version 1)
Quarter: 2023Q4

REPORT INFORMATION
  Report Type: Spontaneous
  Country: CN (occurrence: None)
  Receive Date: 20231114
  Receipt Date: 20231114
  Transmission Date: 20240109
  Serious: Yes (Other)
  Sender: FDA-Public Use
  Company Number: 2023A256575

PATIENT
  Age: 3443 Week
  Sex: Female
  Weight: 52 kg

DRUGS (1)
  1. DAPAGLIFLOZIN [Suspect]
     Active Substance: DAPAGLIFLOZIN
     Indication: Blood glucose increased
     Route: 048
     Dates: start: 20231010, end: 20231013

REACTIONS (3)
  - Nausea [Recovered/Resolved]
  - Pallor [Unknown]
  - Dizziness [Unknown]

NARRATIVE: CASE EVENT DATE: 20231013
